FAERS Safety Report 19294693 (Version 1)
Quarter: 2021Q2

REPORT INFORMATION
  Report Type: Spontaneous
  Country: SE (occurrence: SE)
  Receive Date: 20210524
  Receipt Date: 20210524
  Transmission Date: 20210717
  Serious: Yes (Other)
  Sender: FDA-Public Use
  Company Number: SE-TEVA-2021-SE-1914056

PATIENT
  Age: 39 Year
  Sex: Female
  Weight: 82 kg

DRUGS (3)
  1. FLUOXETIN TEVA 20 MG KAPSEL, HARD [Suspect]
     Active Substance: FLUOXETINE HYDROCHLORIDE
     Indication: ANXIETY
     Dosage: 20 MG 1 TABLET DAILY
     Route: 048
     Dates: start: 20210225, end: 20210420
  2. LEVAXIN 100 MIKROGRAM TABLETT [Concomitant]
     Dosage: 100 MICROGRAM DAILY;
     Route: 048
     Dates: start: 2006
  3. LEVAXIN 100 MIKROGRAM TABLETT [Concomitant]
     Dosage: 100 MICROGRAM DAILY;
     Route: 048

REACTIONS (2)
  - Weight increased [Not Recovered/Not Resolved]
  - Rash [Recovering/Resolving]

NARRATIVE: CASE EVENT DATE: 20210228
